FAERS Safety Report 8617100 (Version 2)
Quarter: 2013Q3

REPORT INFORMATION
  Report Type: Report from Study
  Country: BE (occurrence: BE)
  Receive Date: 20120615
  Receipt Date: 20130711
  Transmission Date: 20140515
  Serious: Yes (Hospitalization)
  Sender: FDA-Public Use
  Company Number: BE-JNJFOC-20120605338

PATIENT
  Age: 38 Year
  Sex: Female
  Weight: 45 kg

DRUGS (7)
  1. REMICADE [Suspect]
     Indication: CROHN^S DISEASE
     Route: 042
     Dates: start: 20110822
  2. REMICADE [Suspect]
     Indication: CROHN^S DISEASE
     Route: 042
     Dates: start: 20110919
  3. REMICADE [Suspect]
     Indication: CROHN^S DISEASE
     Route: 042
     Dates: start: 20110711
  4. IMURAN [Concomitant]
     Indication: CROHN^S DISEASE
     Dates: start: 201005
  5. INDERAL [Concomitant]
     Indication: TACHYCARDIA
     Dates: start: 20080822
  6. METFORMINE [Concomitant]
     Indication: TYPE 2 DIABETES MELLITUS
     Dates: start: 20110323
  7. L-THYROXINE [Concomitant]
     Indication: HYPOTHYROIDISM
     Dates: start: 20111004

REACTIONS (1)
  - Crohn^s disease [Recovered/Resolved]
